FAERS Safety Report 25779287 (Version 1)
Quarter: 2025Q3

REPORT INFORMATION
  Report Type: Report from Study
  Country: CA (occurrence: CA)
  Receive Date: 20250909
  Receipt Date: 20250909
  Transmission Date: 20251021
  Serious: Yes (Death)
  Sender: IPSEN BIOPHARMACEUTICALS, INC.
  Company Number: CA-IPSEN Group, Research and Development-2025-21789

PATIENT
  Age: 68 Year
  Sex: Male

DRUGS (18)
  1. LANREOTIDE ACETATE [Suspect]
     Active Substance: LANREOTIDE ACETATE
     Indication: Gastroenteropancreatic neuroendocrine tumour disease
     Route: 058
     Dates: start: 20231023
  2. AMLODIPINE [Concomitant]
     Active Substance: AMLODIPINE BESYLATE
     Dosage: 5MG 1/2 TAB ONCE DAILY
  3. EZETIMIBE [Concomitant]
     Active Substance: EZETIMIBE
  4. METFORMIN [Concomitant]
     Active Substance: METFORMIN HYDROCHLORIDE
  5. ATORVASTATIN [Concomitant]
     Active Substance: ATORVASTATIN
  6. SITAGLIPTIN [Concomitant]
     Active Substance: SITAGLIPTIN
  7. GLICLAZIDE [Concomitant]
     Active Substance: GLICLAZIDE
  8. TAMSULOSIN HYDROCHLORIDE [Concomitant]
     Active Substance: TAMSULOSIN HYDROCHLORIDE
  9. DUTASTERIDE AB [Concomitant]
  10. CANAGLIFLOZIN ANHYDROUS [Concomitant]
     Active Substance: CANAGLIFLOZIN ANHYDROUS
  11. TELMISARTAN 1A PHARMA [Concomitant]
  12. HYDROMORPHONE HCL [Concomitant]
     Active Substance: HYDROMORPHONE HYDROCHLORIDE
  13. SENNOSIDES [Concomitant]
     Active Substance: SENNOSIDES
  14. VITAMIN C [Concomitant]
     Active Substance: ASCORBIC ACID
  15. ASPIRIN [Concomitant]
     Active Substance: ASPIRIN
  16. VITAMINS [Concomitant]
     Active Substance: VITAMINS
  17. VITAMIN D NOS [Concomitant]
     Active Substance: CHOLECALCIFEROL\ERGOCALCIFEROL
  18. B12 1000 SR [Concomitant]

REACTIONS (1)
  - Death [Fatal]

NARRATIVE: CASE EVENT DATE: 20250211
